FAERS Safety Report 21559719 (Version 3)
Quarter: 2023Q2

REPORT INFORMATION
  Report Type: Report from Study
  Country: JP (occurrence: JP)
  Receive Date: 20221107
  Receipt Date: 20230528
  Transmission Date: 20230722
  Serious: No
  Sender: FDA-Public Use
  Company Number: JP-ARGENX-2022-ARGX-JP002306

PATIENT
  Sex: Female
  Weight: 73.4 kg

DRUGS (8)
  1. VYVGART [Suspect]
     Active Substance: EFGARTIGIMOD ALFA-FCAB
     Indication: Myasthenia gravis
     Dosage: 730 MG, 1/WEEK
     Route: 041
     Dates: start: 20221019, end: 20221026
  2. PREDNISOLONE [Concomitant]
     Active Substance: PREDNISOLONE
     Indication: Myasthenia gravis
     Dosage: 14 MG
     Route: 048
     Dates: start: 20220915
  3. CYCLOSPORINE [Concomitant]
     Active Substance: CYCLOSPORINE
     Indication: Myasthenia gravis
     Dosage: 250 MG
     Route: 048
     Dates: start: 20220724
  4. ALFAROL [Concomitant]
     Active Substance: ALFACALCIDOL
     Indication: Prophylaxis
     Dosage: 0.5 UG
     Route: 048
     Dates: start: 20221020, end: 20230119
  5. SULFAMETHOXAZOLE\TRIMETHOPRIM [Concomitant]
     Active Substance: SULFAMETHOXAZOLE\TRIMETHOPRIM
     Indication: Prophylaxis
     Dosage: 1 G
     Route: 048
     Dates: start: 20221020
  6. ALENDRONATE [Concomitant]
     Active Substance: ALENDRONATE SODIUM
     Indication: Prophylaxis
     Dosage: 35 MG, 1/WEEK
     Route: 048
     Dates: start: 20230120
  7. SODIUM FERROUS CITRATE [Concomitant]
     Active Substance: SODIUM FERROUS CITRATE
     Indication: Iron deficiency anaemia
     Dosage: 50 MG
     Route: 048
     Dates: start: 20221107, end: 20230119
  8. SHAKUYAKUKANZOTO [Concomitant]
     Active Substance: HERBALS
     Indication: Muscle spasms
     Dosage: 2.5 G
     Route: 048
     Dates: start: 20221101

REACTIONS (1)
  - Intentional product use issue [Unknown]
